FAERS Safety Report 19897248 (Version 1)
Quarter: 2021Q3

REPORT INFORMATION
  Report Type: Spontaneous
  Country: US (occurrence: US)
  Receive Date: 20210930
  Receipt Date: 20210930
  Transmission Date: 20211014
  Serious: Yes (Hospitalization)
  Sender: FDA-Public Use
  Company Number: US-HIKMA PHARMACEUTICALS USA INC.-US-H14001-21-04138

PATIENT
  Age: 62 Year
  Sex: Male
  Weight: 64.3 kg

DRUGS (2)
  1. PREDNISONE. [Suspect]
     Active Substance: PREDNISONE
     Indication: CHRONIC GRAFT VERSUS HOST DISEASE
     Route: 048
     Dates: start: 20210729, end: 20210805
  2. INCB039110 [Suspect]
     Active Substance: ITACITINIB
     Indication: CHRONIC GRAFT VERSUS HOST DISEASE
     Dates: start: 20210609, end: 20210831

REACTIONS (19)
  - Spinal osteoarthritis [Unknown]
  - Malaise [Unknown]
  - Phlebolith [Unknown]
  - Blood lactic acid increased [Unknown]
  - Chills [Unknown]
  - Abdominal pain [Unknown]
  - Dizziness [Unknown]
  - Atelectasis [Unknown]
  - Tachycardia [Unknown]
  - Hypertension [Unknown]
  - Pyrexia [Not Recovered/Not Resolved]
  - White blood cell count decreased [Unknown]
  - Fatigue [Unknown]
  - Flatulence [Unknown]
  - Diarrhoea [Unknown]
  - Muscle spasms [Unknown]
  - Blood creatinine increased [Unknown]
  - Blood magnesium decreased [Unknown]
  - Pleural effusion [Unknown]

NARRATIVE: CASE EVENT DATE: 20210830
